FAERS Safety Report 7237247-5 (Version None)
Quarter: 2011Q1

REPORT INFORMATION
  Report Type: 
  Country: None (occurrence: None)
  Receive Date: 20110121
  Receipt Date: 20110110
  Transmission Date: 20110831
  Serious: Yes (Other)
  Sender: FDA-Public Use
  Company Number: CA-JNJFOC-20110102526

PATIENT
  Sex: Female
  Weight: 61.24 kg

DRUGS (1)
  1. STELARA [Suspect]
     Indication: PSORIASIS
     Route: 058
     Dates: start: 20100219

REACTIONS (2)
  - ABDOMINAL HERNIA [None]
  - DIVERTICULITIS [None]
